FAERS Safety Report 22032173 (Version 1)
Quarter: 2023Q1

REPORT INFORMATION
  Report Type: Report from Study
  Country: US (occurrence: US)
  Receive Date: 20230224
  Receipt Date: 20230224
  Transmission Date: 20230418
  Serious: Yes (Other)
  Sender: FDA-Public Use
  Company Number: US-AMGEN-USASL2023028524

PATIENT
  Age: 52 Year
  Sex: Female

DRUGS (1)
  1. ENBREL [Suspect]
     Active Substance: ETANERCEPT
     Indication: Psoriatic arthropathy
     Dosage: 50 MILLIGRAM, QWK
     Route: 065
     Dates: start: 20230111

REACTIONS (7)
  - Erythema [Unknown]
  - Injection site scab [Not Recovered/Not Resolved]
  - Feeling hot [Unknown]
  - Injection site urticaria [Recovered/Resolved]
  - Injection site discolouration [Unknown]
  - Psoriatic arthropathy [Not Recovered/Not Resolved]
  - Product communication issue [Unknown]

NARRATIVE: CASE EVENT DATE: 20230101
